FAERS Safety Report 6981225-8 (Version None)
Quarter: 2010Q3

REPORT INFORMATION
  Report Type: 
  Country: None (occurrence: None)
  Receive Date: 20100914
  Receipt Date: 20100903
  Transmission Date: 20110219
  Serious: No
  Sender: FDA-Public Use
  Company Number: US-PFIZER INC-2010112430

PATIENT
  Age: 72 Year
  Sex: Female

DRUGS (2)
  1. ZYVOX [Suspect]
     Indication: DIABETIC FOOT
     Dosage: 600 MG, 2X/DAY
     Route: 048
     Dates: end: 20100101
  2. CLEOCIN [Concomitant]
     Dosage: UNK

REACTIONS (1)
  - DIARRHOEA [None]
